FAERS Safety Report 12776767 (Version 2)
Quarter: 2016Q4

REPORT INFORMATION
  Report Type: Report from Study
  Country: None (occurrence: US)
  Receive Date: 20160923
  Receipt Date: 20161005
  Transmission Date: 20170207
  Serious: Yes (Other)
  Sender: FDA-Public Use
  Company Number: US-ABBVIE-16K-163-1736112-00

PATIENT
  Sex: Male
  Weight: 86.26 kg

DRUGS (2)
  1. REMICADE [Suspect]
     Active Substance: INFLIXIMAB
     Indication: PRODUCT USED FOR UNKNOWN INDICATION
     Route: 065
  2. HUMIRA [Suspect]
     Active Substance: ADALIMUMAB
     Indication: CROHN^S DISEASE
     Route: 058
     Dates: start: 2015, end: 201603

REACTIONS (5)
  - Drug resistance [Not Recovered/Not Resolved]
  - Drug resistance [Not Recovered/Not Resolved]
  - Anal fistula [Recovering/Resolving]
  - Impaired healing [Recovering/Resolving]
  - Fistula discharge [Recovering/Resolving]

NARRATIVE: CASE EVENT DATE: 2016
